FAERS Safety Report 7945042-4 (Version None)
Quarter: 2011Q4

REPORT INFORMATION
  Report Type: 
  Country: None (occurrence: None)
  Receive Date: 20111129
  Receipt Date: 20111118
  Transmission Date: 20120403
  Serious: Yes (Hospitalization)
  Sender: FDA-Public Use
  Company Number: US-UCBSA-046099

PATIENT
  Age: 48 Year
  Sex: Female
  Weight: 64 kg

DRUGS (14)
  1. LEVETIRACETAM [Suspect]
     Indication: GRAND MAL CONVULSION
     Dosage: DAILY DOSE:2500 MG
     Dates: start: 20090801
  2. ACETAMINOPHEN [Concomitant]
     Indication: PAIN
     Dosage: 500 MG AS NEEDED
     Dates: start: 19830101
  3. NAPROXEN PRESCRIPTION [Concomitant]
     Indication: GENERAL PHYSICAL HEALTH DETERIORATION
     Dosage: DAILY DOSE:1000 MG
     Route: 048
     Dates: start: 19850901
  4. PHENOBARBITAL TAB [Concomitant]
     Indication: CONVULSION
     Dosage: DAILY DOSE:180 MG
     Dates: start: 20000905
  5. LORAZEPAM [Concomitant]
     Indication: GRAND MAL CONVULSION
     Dosage: 2 MG AS NEEDED
     Dates: start: 20070501
  6. LAMICTAL [Concomitant]
     Indication: CONVULSION
     Dosage: DAILY DOSE:600 MG
     Route: 048
     Dates: start: 20110915
  7. NAPROXEN PRESCRIPTION [Concomitant]
     Indication: PAIN
     Dosage: DAILY DOSE:1000 MG
     Route: 048
     Dates: start: 19850901
  8. LEVETIRACETAM [Suspect]
     Indication: CONVULSION
     Dosage: DAILY DOSE:2500 MG
     Dates: start: 20090801
  9. LEVETIRACETAM [Suspect]
     Dosage: DAILY DOSE:2500 MG
     Route: 048
     Dates: start: 20061001
  10. ZOLOFT [Concomitant]
     Indication: DEPRESSION
     Dosage: DAILY DOSE:50 MG
     Route: 048
     Dates: start: 20050520
  11. LEVETIRACETAM [Suspect]
     Dosage: DAILY DOSE:2500 MG
     Route: 048
     Dates: start: 20061001
  12. NEURONTIN [Concomitant]
     Indication: GRAND MAL CONVULSION
     Dosage: DAILY DOSE:800 MG
     Route: 048
     Dates: start: 20070801
  13. LAMOTRIGINE [Concomitant]
     Indication: CONVULSION
     Dosage: DAILY DOSE:100 MG
     Route: 048
     Dates: start: 20050512
  14. GABAPENTIN [Concomitant]
     Indication: CONVULSION
     Dosage: DAILY DOSE:1500 MG
     Route: 048
     Dates: start: 20050801

REACTIONS (1)
  - STATUS EPILEPTICUS [None]
